FAERS Safety Report 7406889-6 (Version None)
Quarter: 2011Q2

REPORT INFORMATION
  Report Type: 
  Country: None (occurrence: None)
  Receive Date: 20110411
  Receipt Date: 20110302
  Transmission Date: 20111010
  Serious: Yes (Death, Other)
  Sender: FDA-Public Use
  Company Number: US-BAXTER-2010BH006595

PATIENT
  Age: 83 Year
  Sex: Female

DRUGS (1)
  1. HEPARIN SODIUM INJECTION [Suspect]
     Indication: PRODUCT USED FOR UNKNOWN INDICATION
     Route: 065
     Dates: end: 20080303

REACTIONS (5)
  - HYPOTENSION [None]
  - MENTAL STATUS CHANGES [None]
  - PULSELESS ELECTRICAL ACTIVITY [None]
  - DEATH [None]
  - TACHYCARDIA [None]
